FAERS Safety Report 10068353 (Version 1)
Quarter: 2014Q2

REPORT INFORMATION
  Report Type: Spontaneous
  Country: US (occurrence: US)
  Receive Date: 20140409
  Receipt Date: 20140409
  Transmission Date: 20141212
  Serious: Yes (Other)
  Sender: FDA-Public Use
  Company Number: US-ALLERGAN-1406502US

PATIENT
  Sex: Female

DRUGS (1)
  1. LUMIGAN 0.01% [Suspect]
     Indication: GLAUCOMA
     Dosage: UNK
     Route: 047
     Dates: start: 201307

REACTIONS (3)
  - Intraocular pressure increased [Not Recovered/Not Resolved]
  - Visual field tests abnormal [Not Recovered/Not Resolved]
  - Drug ineffective [Unknown]
